FAERS Safety Report 13110870 (Version 1)
Quarter: 2017Q1

REPORT INFORMATION
  Report Type: Spontaneous
  Country: US (occurrence: US)
  Receive Date: 20170112
  Receipt Date: 20170112
  Transmission Date: 20170428
  Serious: Yes (Hospitalization)
  Sender: FDA-Public Use
  Company Number: US-BAYER-2017-004841

PATIENT
  Age: 83 Year
  Sex: Female

DRUGS (9)
  1. CALCIUM CARBONATE. [Suspect]
     Active Substance: CALCIUM CARBONATE
     Dosage: UNK
     Route: 048
  2. SODIUM POLYSTYRENE SULFONATE. [Suspect]
     Active Substance: SODIUM POLYSTYRENE SULFONATE
  3. ALENDRONATE SODIUM. [Concomitant]
     Active Substance: ALENDRONATE SODIUM
     Dosage: 35 MG, UNK
     Route: 048
  4. ALENDRONATE SODIUM. [Concomitant]
     Active Substance: ALENDRONATE SODIUM
     Dosage: 81 MG, UNK
     Route: 048
  5. MAGNESIUM HYDROXIDE. [Interacting]
     Active Substance: MAGNESIUM HYDROXIDE
     Indication: HYPERKALAEMIA
     Dosage: 3000 MG, UNK
     Route: 048
  6. ALENDRONATE SODIUM. [Concomitant]
     Active Substance: ALENDRONATE SODIUM
     Dosage: 10 MG, UNK
     Route: 048
  7. MAGNESIUM HYDROXIDE. [Interacting]
     Active Substance: MAGNESIUM HYDROXIDE
     Indication: HYPERKALAEMIA
     Dosage: 800 MG, UNK
     Route: 048
  8. ALENDRONATE SODIUM. [Concomitant]
     Active Substance: ALENDRONATE SODIUM
     Dosage: 20 MG, UNK
     Route: 048
  9. ALENDRONATE SODIUM. [Concomitant]
     Active Substance: ALENDRONATE SODIUM
     Dosage: 5 MG, UNK
     Route: 048

REACTIONS (4)
  - Hypokalaemia [Recovered/Resolved]
  - Metabolic alkalosis [Recovered/Resolved]
  - Fluid overload [Unknown]
  - Drug interaction [Unknown]
